FAERS Safety Report 9433734 (Version 1)
Quarter: 2013Q3

REPORT INFORMATION
  Report Type: Spontaneous
  Country: US (occurrence: US)
  Receive Date: 20130731
  Receipt Date: 20130731
  Transmission Date: 20140515
  Serious: Yes (Death, Other)
  Sender: FDA-Public Use
  Company Number: US-US-EMD SERONO, INC.-230959J08USA

PATIENT
  Sex: Female
  Weight: 87 kg

DRUGS (1)
  1. REBIF [Suspect]
     Indication: MULTIPLE SCLEROSIS
     Route: 058
     Dates: start: 20020725

REACTIONS (5)
  - Secondary progressive multiple sclerosis [Fatal]
  - Respiratory failure [Fatal]
  - Colon cancer [Recovering/Resolving]
  - Pneumonia [Unknown]
  - Immobile [Not Recovered/Not Resolved]
